FAERS Safety Report 5816465-4 (Version None)
Quarter: 2008Q3

REPORT INFORMATION
  Report Type: 
  Country: None (occurrence: None)
  Receive Date: 20080721
  Receipt Date: 20080711
  Transmission Date: 20090109
  Serious: Yes (Other)
  Sender: FDA-Public Use
  Company Number: US-GENENTECH-264308

PATIENT
  Sex: Male
  Weight: 38.2 kg

DRUGS (2)
  1. HUMATROPE [Suspect]
     Indication: RENAL DISORDER
     Dosage: 1 G, 6/WEEK
     Route: 058
     Dates: start: 20041104
  2. ZESTRIL [Concomitant]
     Indication: DRUG USE FOR UNKNOWN INDICATION
     Dosage: 0.5 TABLET, QD
     Route: 048
     Dates: start: 20050210

REACTIONS (1)
  - LABORATORY TEST ABNORMAL [None]
